FAERS Safety Report 25691595 (Version 2)
Quarter: 2025Q4

REPORT INFORMATION
  Report Type: Spontaneous
  Country: US (occurrence: US)
  Receive Date: 20250818
  Receipt Date: 20251016
  Transmission Date: 20260117
  Serious: No
  Sender: CIPLA
  Company Number: US-CIPLA LTD.-2025US10034

PATIENT

DRUGS (2)
  1. ALBUTEROL [Suspect]
     Active Substance: ALBUTEROL
     Indication: Product used for unknown indication
     Dosage: 90 MICROGRAM (1 PUFF) BY MOUTH, PRN (EVERY 4-6 HOURS AS NEEDED) (REGULAR USER)
     Dates: start: 2018
  2. ALBUTEROL [Suspect]
     Active Substance: ALBUTEROL
     Dosage: 90 MICROGRAM (1 PUFF), BY MOUTH PRN (EVERY 4-6 HOURS AS NEEDED)
     Dates: start: 20250723

REACTIONS (3)
  - Product residue present [Unknown]
  - Drug dose omission by device [Unknown]
  - Device delivery system issue [Unknown]

NARRATIVE: CASE EVENT DATE: 20250726
